FAERS Safety Report 17361655 (Version 2)
Quarter: 2020Q3

REPORT INFORMATION
  Report Type: Spontaneous
  Country: US (occurrence: US)
  Receive Date: 20200203
  Receipt Date: 20200915
  Transmission Date: 20201102
  Serious: Yes (Hospitalization, Other)
  Sender: FDA-Public Use
  Company Number: US-GILEAD-2020-0448786

PATIENT
  Age: 37 Year
  Sex: Male
  Weight: 59.86 kg

DRUGS (49)
  1. AURYXIA [Concomitant]
     Active Substance: TETRAFERRIC TRICITRATE DECAHYDRATE
  2. ISENTRESS [Concomitant]
     Active Substance: RALTEGRAVIR POTASSIUM
  3. LEXIVA [Concomitant]
     Active Substance: FOSAMPRENAVIR CALCIUM
  4. ABACAVIR. [Concomitant]
     Active Substance: ABACAVIR
  5. BICILLIN [BENZATHINE BENZYLPENICILLIN] [Concomitant]
  6. BUTALB/ACET/CAFFEINE [Concomitant]
  7. PROAIR [FLUTICASONE PROPIONATE] [Concomitant]
     Active Substance: FLUTICASONE PROPIONATE
  8. TIVICAY [Concomitant]
     Active Substance: DOLUTEGRAVIR SODIUM
  9. AMOXICILLIN. [Concomitant]
     Active Substance: AMOXICILLIN
  10. AZITHROMYCIN ANHYDROUS. [Concomitant]
     Active Substance: AZITHROMYCIN ANHYDROUS
  11. FUROSEMIDE. [Concomitant]
     Active Substance: FUROSEMIDE
  12. LOSARTAN. [Concomitant]
     Active Substance: LOSARTAN
  13. NORTRIPTYLIN [Concomitant]
     Active Substance: NORTRIPTYLINE
  14. ONDANSETRON [Concomitant]
     Active Substance: ONDANSETRON
  15. APTIVUS [Concomitant]
     Active Substance: TIPRANAVIR
  16. NORVIR [Concomitant]
     Active Substance: RITONAVIR
  17. PREZISTA [Concomitant]
     Active Substance: DARUNAVIR ETHANOLATE
  18. FENTANYL. [Concomitant]
     Active Substance: FENTANYL
  19. HYDROCODONE [Concomitant]
     Active Substance: HYDROCODONE
  20. MEGESTROL [Concomitant]
     Active Substance: MEGESTROL
  21. NYSTOP [Concomitant]
     Active Substance: NYSTATIN
  22. TRUVADA [Suspect]
     Active Substance: EMTRICITABINE\TENOFOVIR DISOPROXIL FUMARATE
     Indication: HIV INFECTION
     Dosage: UNK
     Route: 048
     Dates: start: 2004
  23. REYATAZ [Concomitant]
     Active Substance: ATAZANAVIR SULFATE
  24. AMLODIPINE BESILATE [Concomitant]
     Active Substance: AMLODIPINE BESYLATE
  25. BENZONATATE. [Concomitant]
     Active Substance: BENZONATATE
  26. FLUCONAZOLE. [Concomitant]
     Active Substance: FLUCONAZOLE
  27. MEPRON [METHYLPREDNISOLONE] [Concomitant]
     Active Substance: METHYLPREDNISOLONE
  28. NAPROXEN. [Concomitant]
     Active Substance: NAPROXEN
  29. ALBUTEROL [SALBUTAMOL] [Concomitant]
     Active Substance: ALBUTEROL
  30. CIPROFLOXACIN. [Concomitant]
     Active Substance: CIPROFLOXACIN
  31. CLONIDINE. [Concomitant]
     Active Substance: CLONIDINE
  32. ISOSORBIDE. [Concomitant]
     Active Substance: ISOSORBIDE
  33. LAMIVUDINE. [Concomitant]
     Active Substance: LAMIVUDINE
  34. NYSTATIN. [Concomitant]
     Active Substance: NYSTATIN
  35. OMEPRAZOLE. [Concomitant]
     Active Substance: OMEPRAZOLE
  36. BACLOPHEN [Concomitant]
     Active Substance: BACLOFEN
  37. CARVEDILOL. [Concomitant]
     Active Substance: CARVEDILOL
  38. DAPSONE. [Concomitant]
     Active Substance: DAPSONE
  39. FERROUS SULFATE. [Concomitant]
     Active Substance: FERROUS SULFATE
  40. HYDRALAZINE [Concomitant]
     Active Substance: HYDRALAZINE HYDROCHLORIDE
  41. HYDROCODONE/ACETAMINOPHEN [Concomitant]
     Active Substance: ACETAMINOPHEN\HYDROCODONE
  42. LEVOFLOXACIN. [Concomitant]
     Active Substance: LEVOFLOXACIN
  43. METHYLPREDNISOLON [METHYLPREDNISOLONE] [Concomitant]
     Active Substance: METHYLPREDNISOLONE
  44. METRONIDAZOLE. [Concomitant]
     Active Substance: METRONIDAZOLE
  45. PREZCOBIX [Concomitant]
     Active Substance: COBICISTAT\DARUNAVIR ETHANOLATE
  46. TRUVADA [Suspect]
     Active Substance: EMTRICITABINE\TENOFOVIR DISOPROXIL FUMARATE
     Dosage: UNK
     Route: 048
     Dates: start: 2005, end: 20100809
  47. INTELENCE [Concomitant]
     Active Substance: ETRAVIRINE
  48. HYDROCHLOROTHIAZIDE. [Concomitant]
     Active Substance: HYDROCHLOROTHIAZIDE
  49. LORAZEPAM. [Concomitant]
     Active Substance: LORAZEPAM

REACTIONS (15)
  - Renal failure [Not Recovered/Not Resolved]
  - Anxiety [Not Recovered/Not Resolved]
  - Fatigue [Not Recovered/Not Resolved]
  - Depression [Unknown]
  - Economic problem [Not Recovered/Not Resolved]
  - Dysstasia [Not Recovered/Not Resolved]
  - Emotional distress [Not Recovered/Not Resolved]
  - Loss of personal independence in daily activities [Not Recovered/Not Resolved]
  - Pain [Not Recovered/Not Resolved]
  - Chronic kidney disease [Not Recovered/Not Resolved]
  - Anhedonia [Not Recovered/Not Resolved]
  - Gait disturbance [Not Recovered/Not Resolved]
  - End stage renal disease [Not Recovered/Not Resolved]
  - Asthenia [Not Recovered/Not Resolved]
  - Renal failure [Not Recovered/Not Resolved]

NARRATIVE: CASE EVENT DATE: 2007
